FAERS Safety Report 19270981 (Version 2)
Quarter: 2021Q2

REPORT INFORMATION
  Report Type: Report from Study
  Country: None (occurrence: IT)
  Receive Date: 20210518
  Receipt Date: 20210524
  Transmission Date: 20210717
  Serious: Yes (Hospitalization)
  Sender: FDA-Public Use
  Company Number: IT-ABBVIE-21K-083-3908172-00

PATIENT
  Age: 83 Year
  Sex: Female

DRUGS (2)
  1. DUODOPA [Suspect]
     Active Substance: CARBIDOPA\LEVODOPA
  2. DUODOPA [Suspect]
     Active Substance: CARBIDOPA\LEVODOPA
     Indication: PARKINSON^S DISEASE
     Dosage: PUMP SETTING: MD: 7,5+3; CR: 4 (14H); ED: 2,5
     Route: 050
     Dates: start: 20170322

REACTIONS (2)
  - Fall [Recovered/Resolved]
  - Skin abrasion [Recovered/Resolved]

NARRATIVE: CASE EVENT DATE: 202105
